FAERS Safety Report 9148543 (Version 1)
Quarter: 2013Q1

REPORT INFORMATION
  Report Type: Spontaneous
  Country: CA (occurrence: CA)
  Receive Date: 20130308
  Receipt Date: 20130308
  Transmission Date: 20140127
  Serious: Yes (Other)
  Sender: FDA-Public Use
  Company Number: CA-PURDUE-CAN-2013-0003783

PATIENT
  Age: 30 Year
  Sex: Female

DRUGS (2)
  1. DILAUDID [Suspect]
     Indication: PAIN
     Dosage: UNK
     Route: 065
  2. DILAUDID [Suspect]
     Indication: PRODUCT USED FOR UNKNOWN INDICATION

REACTIONS (5)
  - Drug dependence [Unknown]
  - Drug abuse [Unknown]
  - Suicide attempt [Unknown]
  - Drug withdrawal syndrome [Unknown]
  - Dysarthria [Unknown]
